FAERS Safety Report 11328221 (Version 1)
Quarter: 2015Q3

REPORT INFORMATION
  Report Type: Spontaneous
  Country: US (occurrence: US)
  Receive Date: 20150731
  Receipt Date: 20150731
  Transmission Date: 20151125
  Serious: No
  Sender: FDA-Public Use
  Company Number: US-TAKEDA-2014TUS006610

PATIENT
  Age: 75 Year
  Sex: Female
  Weight: 72.56 kg

DRUGS (8)
  1. COLCRYS [Suspect]
     Active Substance: COLCHICINE
     Dosage: 0.6 MG, QD
     Route: 048
     Dates: start: 20140604, end: 20140707
  2. COLCRYS [Suspect]
     Active Substance: COLCHICINE
     Indication: GOUT
     Dosage: 0.6 MG, QD
     Route: 048
     Dates: start: 201404, end: 2014
  3. LEVOTHYROXINE. [Concomitant]
     Active Substance: LEVOTHYROXINE
     Indication: HYPOTHYROIDISM
     Dosage: 0.1 MG, QD
     Route: 048
  4. FUROSEMIDE. [Concomitant]
     Active Substance: FUROSEMIDE
     Indication: HEART VALVE REPLACEMENT
     Dosage: 40 MG, QD
     Route: 048
  5. PRILOSEC [Concomitant]
     Active Substance: OMEPRAZOLE MAGNESIUM
     Indication: DYSPEPSIA
     Dosage: UNK
  6. INSULIN (NOVOLIN) [Concomitant]
     Indication: DIABETES MELLITUS
     Dosage: 10 - 15 UNITS QAM AND 20 - 25 UNITS QPM/SQ
  7. METFORMIN [Concomitant]
     Active Substance: METFORMIN HYDROCHLORIDE
     Indication: DIABETES MELLITUS
     Dosage: 1000 MG, UNK
     Dates: start: 2013
  8. ATENOLOL. [Concomitant]
     Active Substance: ATENOLOL
     Indication: HYPERTENSION
     Dosage: UNK, QD
     Route: 048

REACTIONS (1)
  - Alopecia [Not Recovered/Not Resolved]

NARRATIVE: CASE EVENT DATE: 201405
